FAERS Safety Report 23759511 (Version 1)
Quarter: 2024Q2

REPORT INFORMATION
  Report Type: Spontaneous
  Country: US (occurrence: None)
  Receive Date: 20240418
  Receipt Date: 20240418
  Transmission Date: 20240715
  Serious: No
  Sender: FDA-Public Use
  Company Number: US-ROCHE-3488128

PATIENT
  Age: 78 Year
  Sex: Female

DRUGS (1)
  1. ESBRIET [Suspect]
     Active Substance: PIRFENIDONE
     Indication: Product used for unknown indication
     Dosage: 534 MG IN AM AND AFTERNOON, 267 MG IN PM
     Route: 048
     Dates: start: 202306

REACTIONS (2)
  - Fatigue [Unknown]
  - Off label use [Unknown]
